FAERS Safety Report 6751487-0 (Version None)
Quarter: 2010Q2

REPORT INFORMATION
  Report Type: 
  Country: None (occurrence: None)
  Receive Date: 20100602
  Receipt Date: 20100521
  Transmission Date: 20101027
  Serious: Yes (Death)
  Sender: FDA-Public Use
  Company Number: DE-ROCHE-704107

PATIENT
  Sex: Male
  Weight: 70 kg

DRUGS (8)
  1. COPEGUS [Suspect]
     Indication: DRUG USE FOR UNKNOWN INDICATION
     Dosage: 3-0-3
     Route: 048
     Dates: start: 20100422, end: 20100509
  2. PEGASYS [Suspect]
     Indication: DRUG USE FOR UNKNOWN INDICATION
     Route: 058
     Dates: start: 20100422, end: 20100509
  3. CERTICAN [Concomitant]
     Dosage: 1-0-1
     Route: 048
  4. PANTOPRAZOLE SODIUM [Concomitant]
     Dosage: 0-0-1
     Route: 048
  5. ACTONEL [Concomitant]
     Dosage: 1-0-0
     Route: 048
  6. FUROSEMIDE [Concomitant]
     Dosage: 1-0-0
     Route: 048
  7. URSO FALK [Concomitant]
     Route: 048
  8. CHOLESTYRAMINE [Concomitant]
     Route: 048

REACTIONS (1)
  - SEPSIS [None]
